FAERS Safety Report 18659975 (Version 1)
Quarter: 2020Q4

REPORT INFORMATION
  Report Type: Spontaneous
  Country: US (occurrence: US)
  Receive Date: 20201224
  Receipt Date: 20201224
  Transmission Date: 20210114
  Serious: No
  Sender: FDA-Public Use
  Company Number: US-ELI_LILLY_AND_COMPANY-US202011011983

PATIENT
  Age: 44 Year
  Sex: Female
  Weight: 81.91 kg

DRUGS (1)
  1. BAMLANIVIMAB 700MG [Suspect]
     Active Substance: BAMLANIVIMAB
     Indication: COVID-19
     Dosage: 700 MG, SINGLE
     Route: 041
     Dates: start: 20201124, end: 20201124

REACTIONS (4)
  - Paraesthesia [Recovered/Resolved]
  - Blood pressure systolic decreased [Recovered/Resolved]
  - Flushing [Recovered/Resolved]
  - Infusion related reaction [Recovered/Resolved]

NARRATIVE: CASE EVENT DATE: 20201124
